FAERS Safety Report 6137743-8 (Version None)
Quarter: 2009Q1

REPORT INFORMATION
  Report Type: 
  Country: None (occurrence: None)
  Receive Date: 20090331
  Receipt Date: 20090326
  Transmission Date: 20090719
  Serious: Yes (Other)
  Sender: FDA-Public Use
  Company Number: US-BAYER-200833267NA

PATIENT
  Age: 53 Year
  Sex: Female
  Weight: 73 kg

DRUGS (8)
  1. CLIMARA [Suspect]
     Indication: MENOPAUSE
     Route: 062
     Dates: start: 19990101, end: 20000101
  2. PROMETRIUM [Suspect]
     Indication: MENOPAUSE
     Dates: start: 19990101, end: 20070601
  3. VIVELLE-DOT [Suspect]
     Indication: MENOPAUSE
     Dates: start: 19990101, end: 20070601
  4. NORVASC [Concomitant]
     Indication: HYPERTENSION
     Dates: start: 19900101
  5. LEVOXYL [Concomitant]
     Indication: HYPOTHYROIDISM
     Dates: start: 19880101
  6. ZOCOR [Concomitant]
     Indication: BLOOD CHOLESTEROL INCREASED
     Dates: start: 19900101
  7. CITALOPRAM HYDROBROMIDE [Concomitant]
     Indication: DEPRESSION
     Dates: start: 19900101
  8. TAMOXIFEN CITRATE [Concomitant]
     Indication: BREAST CANCER

REACTIONS (2)
  - ARTHRITIS [None]
  - BREAST CANCER [None]
